FAERS Safety Report 6191592-3 (Version None)
Quarter: 2009Q2

REPORT INFORMATION
  Report Type: 
  Country: None (occurrence: None)
  Receive Date: 20090515
  Receipt Date: 20090506
  Transmission Date: 20091009
  Serious: Yes (Hospitalization, Other)
  Sender: FDA-Public Use
  Company Number: PHHY2009BR17470

PATIENT
  Age: 60 Year
  Sex: Female

DRUGS (4)
  1. OCTREOTIDE ACETATE [Suspect]
     Dosage: 20 MG/MONTH
  2. OCTREOTIDE ACETATE [Suspect]
     Dosage: 30 MG/MONTH
  3. DEXAMETHASONE 4MG TAB [Concomitant]
  4. CYCLOPHOSPHAMIDE [Concomitant]

REACTIONS (19)
  - ABDOMINAL PAIN [None]
  - ANISOCYTOSIS [None]
  - BLOOD CALCIUM INCREASED [None]
  - BLOOD CREATININE INCREASED [None]
  - BLOOD IMMUNOGLOBULIN M INCREASED [None]
  - BLOOD UREA INCREASED [None]
  - BONE MARROW LEUKAEMIC CELL INFILTRATION [None]
  - DIZZINESS [None]
  - DRUG INEFFECTIVE [None]
  - HYPERTENSION [None]
  - LEUKOPENIA [None]
  - MARROW HYPERPLASIA [None]
  - NAUSEA [None]
  - POLYCYTHAEMIA [None]
  - PROTEIN TOTAL INCREASED [None]
  - SPLENOMEGALY [None]
  - THROMBOCYTOPENIA [None]
  - VOMITING [None]
  - WALDENSTROM'S MACROGLOBULINAEMIA [None]
